FAERS Safety Report 9060176 (Version 1)
Quarter: 2013Q1

REPORT INFORMATION
  Report Type: Spontaneous
  Country: US (occurrence: None)
  Receive Date: 20130207
  Receipt Date: 20130207
  Transmission Date: 20140127
  Serious: No
  Sender: FDA-Public Use
  Company Number: None

PATIENT
  Sex: Female

DRUGS (1)
  1. TOPIRAMATE [Suspect]
     Indication: MIGRAINE
     Dosage: 200 MG BID PO
     Route: 048

REACTIONS (4)
  - Cognitive disorder [None]
  - Impaired work ability [None]
  - Constipation [None]
  - Product substitution issue [None]
